FAERS Safety Report 18701743 (Version 1)
Quarter: 2021Q1

REPORT INFORMATION
  Report Type: Spontaneous
  Country: US (occurrence: US)
  Receive Date: 20210105
  Receipt Date: 20210105
  Transmission Date: 20210419
  Serious: Yes (Death)
  Sender: FDA-Public Use
  Company Number: US-PFIZER INC-2019269934

PATIENT
  Age: 72 Year
  Sex: Female
  Weight: 59 kg

DRUGS (5)
  1. XALKORI [Suspect]
     Active Substance: CRIZOTINIB
     Indication: SARCOMA
  2. ONDANSETRON [Concomitant]
     Active Substance: ONDANSETRON
     Indication: NAUSEA
     Dosage: 8 MG, 3X/DAY (8 MG BY MOUTH THREE TIMES PER DAY AS NEEDED)
     Route: 048
     Dates: start: 201902
  3. XALKORI [Suspect]
     Active Substance: CRIZOTINIB
     Indication: UTERINE CANCER
     Dosage: 250 MG, 2X/DAY
     Route: 048
     Dates: start: 201902
  4. XALKORI [Suspect]
     Active Substance: CRIZOTINIB
     Indication: SOFT TISSUE SARCOMA
  5. ZOFRAN [Concomitant]
     Active Substance: ONDANSETRON HYDROCHLORIDE
     Dosage: UNK

REACTIONS (3)
  - Off label use [Unknown]
  - Death [Fatal]
  - Intentional product misuse [Unknown]

NARRATIVE: CASE EVENT DATE: 20200727
